FAERS Safety Report 17840821 (Version 5)
Quarter: 2020Q4

REPORT INFORMATION
  Report Type: Report from Study
  Country: US (occurrence: US)
  Receive Date: 20200529
  Receipt Date: 20201229
  Transmission Date: 20210113
  Serious: Yes (Hospitalization)
  Sender: FDA-Public Use
  Company Number: US-AGIOS-2005US01904

PATIENT

DRUGS (4)
  1. TIBSOVO [Suspect]
     Active Substance: IVOSIDENIB
     Dosage: 250 MG, 2 TABLETS (500 MG), QD
     Route: 048
  2. TIBSOVO [Suspect]
     Active Substance: IVOSIDENIB
     Indication: ISOCITRATE DEHYDROGENASE GENE MUTATION
     Dosage: 250MG, 2 TABLETS (500MG) DAILY
     Route: 048
     Dates: start: 20200420
  3. TIBSOVO [Suspect]
     Active Substance: IVOSIDENIB
     Indication: MYELODYSPLASTIC SYNDROME
     Dosage: 250 MG, 2 TABLETS (500 MG), QD
     Route: 048
     Dates: start: 20200420, end: 20201216
  4. TIBSOVO [Suspect]
     Active Substance: IVOSIDENIB
     Dosage: 250 MILLIGRAM, QD
     Route: 048

REACTIONS (8)
  - Nausea [Recovered/Resolved]
  - Weight decreased [Recovered/Resolved]
  - Depression [Recovered/Resolved]
  - Animal bite [Recovered/Resolved]
  - White blood cell count decreased [Recovering/Resolving]
  - Malaise [Unknown]
  - Migraine [Recovered/Resolved]
  - Off label use [Not Recovered/Not Resolved]

NARRATIVE: CASE EVENT DATE: 20200421
